FAERS Safety Report 15863425 (Version 2)
Quarter: 2019Q1

REPORT INFORMATION
  Report Type: Spontaneous
  Country: US (occurrence: US)
  Receive Date: 20190124
  Receipt Date: 20190211
  Transmission Date: 20190417
  Serious: Yes (Other)
  Sender: FDA-Public Use
  Company Number: US-PFIZER INC-2019031352

PATIENT
  Age: 66 Year
  Sex: Male

DRUGS (3)
  1. METHOTREXATE SODIUM. [Suspect]
     Active Substance: METHOTREXATE SODIUM
     Indication: MYCOBACTERIUM MARINUM INFECTION
     Dosage: UNK
  2. PREDNISONE. [Concomitant]
     Active Substance: PREDNISONE
     Indication: MYCOBACTERIUM MARINUM INFECTION
     Dosage: UNK
     Route: 048
  3. INFLIXIMAB [Suspect]
     Active Substance: INFLIXIMAB
     Indication: MYCOBACTERIUM MARINUM INFECTION
     Dosage: UNK
     Route: 042

REACTIONS (2)
  - Mycobacterium marinum infection [Recovered/Resolved]
  - Condition aggravated [Recovered/Resolved]
